FAERS Safety Report 14965038 (Version 1)
Quarter: 2018Q2

REPORT INFORMATION
  Report Type: Spontaneous
  Country: US (occurrence: US)
  Receive Date: 20180511
  Receipt Date: 20180511
  Transmission Date: 20180711
  Serious: Yes (Hospitalization, Disabling)
  Sender: FDA-Public Use
  Company Number: None

PATIENT
  Age: 28 Year
  Sex: Female

DRUGS (6)
  1. JADENU [Suspect]
     Active Substance: DEFERASIROX
     Indication: IRON DEFICIENCY ANAEMIA
     Route: 048
     Dates: start: 20171108
  2. HYDROMORPHON [Concomitant]
     Active Substance: HYDROMORPHONE
  3. HYDROXYUREA. [Concomitant]
     Active Substance: HYDROXYUREA
  4. TRAMADOL. [Concomitant]
     Active Substance: TRAMADOL
  5. XARELTO [Concomitant]
     Active Substance: RIVAROXABAN
  6. FOLIC ACID. [Concomitant]
     Active Substance: FOLIC ACID

REACTIONS (2)
  - Drug dose omission [None]
  - Sickle cell anaemia with crisis [None]

NARRATIVE: CASE EVENT DATE: 20180326
